FAERS Safety Report 15184886 (Version 1)
Quarter: 2018Q3

REPORT INFORMATION
  Report Type: Spontaneous
  Country: US (occurrence: US)
  Receive Date: 20180723
  Receipt Date: 20180723
  Transmission Date: 20181010
  Serious: No
  Sender: FDA-Public Use
  Company Number: US-AMGEN-USASP2018066552

PATIENT
  Age: 74 Year
  Sex: Female

DRUGS (1)
  1. REPATHA [Suspect]
     Active Substance: EVOLOCUMAB
     Indication: BLOOD CHOLESTEROL INCREASED
     Dosage: UNK UNK, Q2WK
     Route: 065
     Dates: start: 20160919, end: 201612

REACTIONS (4)
  - Oropharyngeal pain [Recovered/Resolved]
  - Joint swelling [Recovered/Resolved]
  - Muscle spasms [Recovered/Resolved]
  - Hepatic enzyme increased [Recovering/Resolving]
